FAERS Safety Report 16498099 (Version 1)
Quarter: 2019Q2

REPORT INFORMATION
  Report Type: Spontaneous
  Country: US (occurrence: US)
  Receive Date: 20190628
  Receipt Date: 20190628
  Transmission Date: 20190711
  Serious: No
  Sender: FDA-Public Use
  Company Number: US-TEVA-2019-US-1061753

PATIENT
  Age: 77 Year
  Sex: Male

DRUGS (5)
  1. AZITHROMYCIN ANHYDROUS. [Concomitant]
     Active Substance: AZITHROMYCIN ANHYDROUS
     Indication: PNEUMONIA
     Dosage: 6 DAYS, FIRST DAY 2, 1 A DAY AFTER
     Dates: start: 20190418, end: 201904
  2. ALBUTEROL (PROVENTIL HFA) [Concomitant]
     Indication: PNEUMONIA
     Dates: start: 20150421, end: 2015
  3. SYMBICORT [Concomitant]
     Active Substance: BUDESONIDE\FORMOTEROL FUMARATE DIHYDRATE
     Indication: PNEUMONIA
     Dates: start: 20150421, end: 2015
  4. AMOXICILLIN. [Concomitant]
     Active Substance: AMOXICILLIN
     Dosage: A WEEK
     Dates: start: 20190418, end: 201904
  5. PROAIR HFA [Suspect]
     Active Substance: ALBUTEROL SULFATE
     Indication: PNEUMONIA
     Dosage: FOR 3 TIMES
     Dates: start: 20190418, end: 20190418

REACTIONS (3)
  - Dyskinesia [Recovered/Resolved]
  - Tremor [Recovered/Resolved]
  - Muscle spasms [Recovered/Resolved]

NARRATIVE: CASE EVENT DATE: 20190418
